FAERS Safety Report 6985507-5 (Version None)
Quarter: 2010Q3

REPORT INFORMATION
  Report Type: 
  Country: None (occurrence: None)
  Receive Date: 20100915
  Receipt Date: 20100906
  Transmission Date: 20110219
  Serious: Yes (Hospitalization)
  Sender: FDA-Public Use
  Company Number: B0674599A

PATIENT
  Age: 59 Year
  Sex: Female

DRUGS (1)
  1. ALBENDAZOLE [Suspect]
     Route: 065
     Dates: start: 20090101

REACTIONS (3)
  - HEPATITIS ACUTE [None]
  - HEPATOTOXICITY [None]
  - TRANSAMINASES INCREASED [None]
